FAERS Safety Report 18125631 (Version 3)
Quarter: 2021Q3

REPORT INFORMATION
  Report Type: Other
  Country: US (occurrence: US)
  Receive Date: 20200807
  Receipt Date: 20210716
  Transmission Date: 20211014
  Serious: Yes (Other)
  Sender: FDA-Public Use
  Company Number: US-ROCHE-2655919

PATIENT
  Sex: Female

DRUGS (15)
  1. ZEGERID [Concomitant]
     Active Substance: OMEPRAZOLE\SODIUM BICARBONATE
  2. ALLEGRA [Concomitant]
     Active Substance: FEXOFENADINE HYDROCHLORIDE
  3. XOLAIR [Suspect]
     Active Substance: OMALIZUMAB
  4. XOLAIR [Suspect]
     Active Substance: OMALIZUMAB
  5. HYDROXIZINE HCL [Concomitant]
  6. CARAFATE [Concomitant]
     Active Substance: SUCRALFATE
  7. XOLAIR [Suspect]
     Active Substance: OMALIZUMAB
     Indication: IDIOPATHIC URTICARIA
     Route: 058
  8. XOLAIR [Suspect]
     Active Substance: OMALIZUMAB
  9. XOLAIR [Suspect]
     Active Substance: OMALIZUMAB
     Route: 058
  10. GABAPENTIN. [Concomitant]
     Active Substance: GABAPENTIN
  11. SINGULAIR [Concomitant]
     Active Substance: MONTELUKAST SODIUM
  12. KETOTIFEN [Concomitant]
     Active Substance: KETOTIFEN
  13. XOLAIR [Suspect]
     Active Substance: OMALIZUMAB
  14. PEPCID [Concomitant]
     Active Substance: FAMOTIDINE
  15. TIZANIDINE. [Concomitant]
     Active Substance: TIZANIDINE

REACTIONS (3)
  - Anaphylactic reaction [Unknown]
  - Urticaria [Unknown]
  - Off label use [Unknown]
